FAERS Safety Report 5322006-0 (Version None)
Quarter: 2007Q2

REPORT INFORMATION
  Report Type: 
  Country: None (occurrence: None)
  Receive Date: 20070508
  Receipt Date: 20070508
  Transmission Date: 20071010
  Serious: Yes (Other)
  Sender: FDA-Public Use
  Company Number: None

PATIENT
  Age: 55 Year
  Sex: Female
  Weight: 48.0813 kg

DRUGS (5)
  1. BONIVA [Suspect]
     Indication: OSTEOPOROSIS
     Dosage: 150MG ONCE A MONTH PO
     Route: 048
     Dates: start: 20060611, end: 20070507
  2. MULTIVITAMINS A WITH MINERALS [Concomitant]
  3. CALCIUM CHLORIDE [Concomitant]
  4. VITAMIN D [Concomitant]
  5. ASPIRIN [Concomitant]

REACTIONS (1)
  - ONYCHOCLASIS [None]
